FAERS Safety Report 12560940 (Version 1)
Quarter: 2016Q3

REPORT INFORMATION
  Report Type: Report from Study
  Country: US (occurrence: US)
  Receive Date: 20160715
  Receipt Date: 20160715
  Transmission Date: 20161109
  Serious: Yes (Other)
  Sender: FDA-Public Use
  Company Number: PHEH2016US017072

PATIENT
  Sex: Female

DRUGS (1)
  1. TOBI [Suspect]
     Active Substance: TOBRAMYCIN
     Indication: INFECTIVE EXACERBATION OF BRONCHIECTASIS
     Dosage: 1 DF (300 MG/5 ML), BID
     Route: 055

REACTIONS (2)
  - Product use issue [Unknown]
  - Pneumonia bacterial [Unknown]
